FAERS Safety Report 24349573 (Version 1)
Quarter: 2024Q3

REPORT INFORMATION
  Report Type: Spontaneous
  Country: GB (occurrence: GB)
  Receive Date: 20240923
  Receipt Date: 20240923
  Transmission Date: 20241017
  Serious: Yes (Life-Threatening, Other)
  Sender: TEVA
  Company Number: None

PATIENT
  Sex: Male

DRUGS (2)
  1. AMLODIPINE [Suspect]
     Active Substance: AMLODIPINE BESYLATE
     Route: 065
  2. DECAPEPTYL [Concomitant]
     Indication: Prostate cancer
     Dosage: DECAPEPTYL SR

REACTIONS (1)
  - Suicidal ideation [Not Recovered/Not Resolved]
